FAERS Safety Report 8218457-7 (Version None)
Quarter: 2012Q1

REPORT INFORMATION
  Report Type: 
  Country: None (occurrence: None)
  Receive Date: 20120319
  Receipt Date: 20120315
  Transmission Date: 20120608
  Serious: No
  Sender: FDA-Public Use
  Company Number: US-PFIZER INC-2012069056

PATIENT
  Sex: Female
  Weight: 113 kg

DRUGS (9)
  1. LISINOPRIL [Concomitant]
     Indication: BLOOD PRESSURE ABNORMAL
     Dosage: 20 MG, DAILY
  2. CHANTIX [Suspect]
     Dosage: 0.5 MG, 2X/DAY
     Dates: start: 20120310
  3. NEXIUM [Concomitant]
     Indication: GASTRIC DISORDER
     Dosage: 40 MG, 2X/DAY
  4. CONCERTA [Concomitant]
     Indication: ATTENTION DEFICIT/HYPERACTIVITY DISORDER
     Dosage: 54 MG, DAILY
  5. LEXAPRO [Concomitant]
     Indication: DEPRESSION
     Dosage: 20 MG, 2X/DAY
  6. ABILIFY [Concomitant]
     Indication: DEPRESSION
     Dosage: 10 MG, DAILY
  7. CHANTIX [Suspect]
     Indication: SMOKING CESSATION THERAPY
     Dosage: 1 MG, 2X/DAY
     Route: 048
  8. NICOTINE [Suspect]
     Indication: SMOKING CESSATION THERAPY
     Dosage: UNK
  9. ACIPHEX [Concomitant]
     Indication: MIGRAINE
     Dosage: UNK, 2X/DAY

REACTIONS (6)
  - DRUG ADMINISTRATION ERROR [None]
  - NERVOUS SYSTEM DISORDER [None]
  - PSYCHOMOTOR HYPERACTIVITY [None]
  - DRUG INEFFECTIVE [None]
  - THINKING ABNORMAL [None]
  - ANXIETY [None]
